FAERS Safety Report 19924975 (Version 5)
Quarter: 2022Q1

REPORT INFORMATION
  Report Type: Report from Study
  Country: US (occurrence: US)
  Receive Date: 20211006
  Receipt Date: 20220226
  Transmission Date: 20220424
  Serious: Yes (Hospitalization, Other)
  Sender: FDA-Public Use
  Company Number: NVSC2021US223586

PATIENT
  Sex: Male
  Weight: 74.83 kg

DRUGS (6)
  1. TREPROSTINIL [Suspect]
     Active Substance: TREPROSTINIL
     Indication: Pulmonary arterial hypertension
     Dosage: 2 NG/KG/MIN, CONT
     Route: 058
     Dates: start: 20210924
  2. TREPROSTINIL [Suspect]
     Active Substance: TREPROSTINIL
     Dosage: 3.6 NG/KG/MIN, CONT
     Route: 058
  3. TREPROSTINIL [Suspect]
     Active Substance: TREPROSTINIL
     Dosage: 10.8 NG/KG/MIN, CONT
     Route: 058
  4. TADALAFIL [Concomitant]
     Active Substance: TADALAFIL
     Indication: Product used for unknown indication
     Dosage: UNK
     Route: 065
  5. OPSUMIT [Concomitant]
     Active Substance: MACITENTAN
     Indication: Product used for unknown indication
     Dosage: UNK
     Route: 065
  6. OFEV [Concomitant]
     Active Substance: NINTEDANIB
     Indication: Product used for unknown indication
     Dosage: UNK
     Route: 065

REACTIONS (8)
  - Arrhythmia [Unknown]
  - Impaired gastric emptying [Unknown]
  - Abdominal discomfort [Unknown]
  - Pain [Unknown]
  - Infusion site pain [Recovered/Resolved]
  - Infusion site pain [Unknown]
  - Joint swelling [Unknown]
  - Peripheral swelling [Unknown]
